FAERS Safety Report 11218191 (Version 1)
Quarter: 2015Q2

REPORT INFORMATION
  Report Type: Spontaneous
  Country: US (occurrence: None)
  Receive Date: 20150624
  Receipt Date: 20150624
  Transmission Date: 20150821
  Serious: Yes (Life-Threatening)
  Sender: FDA-Public Use
  Company Number: None

PATIENT
  Age: 74 Year
  Sex: Female
  Weight: 50 kg

DRUGS (5)
  1. ONDANSETRON [Concomitant]
     Active Substance: ONDANSETRON
  2. VINCRISTINE [Concomitant]
     Active Substance: VINCRISTINE
  3. DECADRON [Concomitant]
     Active Substance: DEXAMETHASONE
  4. RITUXIMAB [Suspect]
     Active Substance: RITUXIMAB
     Indication: FOLLICLE CENTRE LYMPHOMA, FOLLICULAR GRADE I, II, III
     Route: 042
     Dates: start: 20150602, end: 20150602
  5. CYCLOPHOSPHAMIDE. [Concomitant]
     Active Substance: CYCLOPHOSPHAMIDE

REACTIONS (4)
  - Wheezing [None]
  - Chest discomfort [None]
  - Oxygen saturation decreased [None]
  - Electrocardiogram ST segment depression [None]

NARRATIVE: CASE EVENT DATE: 20150603
